FAERS Safety Report 7928896-7 (Version None)
Quarter: 2011Q4

REPORT INFORMATION
  Report Type: 
  Country: None (occurrence: None)
  Receive Date: 20111118
  Receipt Date: 20111110
  Transmission Date: 20120403
  Serious: Yes (Other)
  Sender: FDA-Public Use
  Company Number: US-JNJFOC-20110905350

PATIENT
  Sex: Female
  Weight: 68.04 kg

DRUGS (1)
  1. STELARA [Suspect]
     Indication: PSORIASIS
     Route: 058
     Dates: start: 20110908

REACTIONS (9)
  - ARTHRALGIA [None]
  - PAIN OF SKIN [None]
  - OROPHARYNGEAL PAIN [None]
  - INJECTION SITE REACTION [None]
  - DYSPNOEA [None]
  - CHEST DISCOMFORT [None]
  - PRURITUS [None]
  - RASH ERYTHEMATOUS [None]
  - BONE PAIN [None]
